FAERS Safety Report 12644001 (Version 1)
Quarter: 2016Q3

REPORT INFORMATION
  Report Type: Spontaneous
  Country: US (occurrence: US)
  Receive Date: 20160811
  Receipt Date: 20160811
  Transmission Date: 20161109
  Serious: Yes (Other)
  Sender: FDA-Public Use
  Company Number: US-PFIZER INC-2016369018

PATIENT
  Sex: Female

DRUGS (1)
  1. VERAPAMIL HCL [Suspect]
     Active Substance: VERAPAMIL HYDROCHLORIDE
     Dosage: UNK (CURRENTLY TAKES TWO 120S AND ANOTHER LATER OF THE CALAN SR TO EQUAL HER DAILY DOSE)

REACTIONS (2)
  - Migraine with aura [Unknown]
  - Transient ischaemic attack [Unknown]
